FAERS Safety Report 18022759 (Version 1)
Quarter: 2020Q3

REPORT INFORMATION
  Report Type: Spontaneous
  Country: US (occurrence: US)
  Receive Date: 20200714
  Receipt Date: 20200714
  Transmission Date: 20201103
  Serious: Yes (Death, Other)
  Sender: FDA-Public Use
  Company Number: US-PURDUE-USA-2020-0157826

PATIENT
  Sex: Female

DRUGS (2)
  1. HYDROCODONE [Suspect]
     Active Substance: HYDROCODONE
     Indication: PRODUCT USED FOR UNKNOWN INDICATION
     Route: 065
  2. OXYCONTIN [Suspect]
     Active Substance: OXYCODONE HYDROCHLORIDE
     Indication: PRODUCT USED FOR UNKNOWN INDICATION
     Route: 048

REACTIONS (10)
  - Overdose [Unknown]
  - Impaired driving ability [Unknown]
  - Hallucination [Unknown]
  - Death [Fatal]
  - Drug abuse [Unknown]
  - Memory impairment [Unknown]
  - Somnolence [Unknown]
  - Drug dependence [Unknown]
  - Abnormal behaviour [Unknown]
  - Belligerence [Unknown]

NARRATIVE: CASE EVENT DATE: 20061014
